FAERS Safety Report 10162863 (Version 2)
Quarter: 2014Q3

REPORT INFORMATION
  Report Type: Report from Study
  Country: DE (occurrence: DE)
  Receive Date: 20140509
  Receipt Date: 20140716
  Transmission Date: 20150326
  Serious: Yes (Hospitalization)
  Sender: FDA-Public Use
  Company Number: DE-ABBVIE-14P-062-1233640-00

PATIENT
  Sex: Male
  Weight: 96 kg

DRUGS (10)
  1. TRIAMCINOLONACETONIDE [Concomitant]
     Active Substance: TRIAMCINOLONE ACETONIDE
     Indication: PSORIASIS
     Route: 061
     Dates: start: 200608, end: 201401
  2. BETAMETHASONVALERAT [Concomitant]
     Indication: PSORIASIS
     Route: 061
     Dates: start: 200608
  3. METAMIZOL [Concomitant]
     Active Substance: METAMIZOLE SODIUM
     Indication: BACK PAIN
     Dosage: AS NEEDED
     Route: 048
  4. HUMIRA [Suspect]
     Active Substance: ADALIMUMAB
     Indication: PSORIASIS
     Route: 058
     Dates: start: 20100408, end: 20140116
  5. MOMETASONFUROAT [Concomitant]
     Indication: PSORIASIS
     Route: 061
     Dates: start: 200608, end: 201401
  6. FLUMETASONPIVALAT [Concomitant]
     Indication: PSORIASIS
     Route: 061
     Dates: start: 201401
  7. METHYLPREDNISOLONACEPONAT [Concomitant]
     Indication: PSORIASIS
     Route: 061
     Dates: start: 201401
  8. RAMIPRIL. [Concomitant]
     Active Substance: RAMIPRIL
     Indication: HYPERTENSION
     Route: 048
  9. PANTOPRAZOLE (PANTOZOL) [Concomitant]
     Indication: GASTRITIS
     Dates: start: 2014
  10. DITHRANOL [Concomitant]
     Indication: PSORIASIS
     Route: 061
     Dates: start: 20060308, end: 20110131

REACTIONS (2)
  - Off label use [Unknown]
  - Follicular thyroid cancer [Recovered/Resolved]
